FAERS Safety Report 6634549-8 (Version None)
Quarter: 2010Q1

REPORT INFORMATION
  Report Type: 
  Country: None (occurrence: None)
  Receive Date: 20100315
  Receipt Date: 20100309
  Transmission Date: 20100710
  Serious: Yes (Hospitalization)
  Sender: FDA-Public Use
  Company Number: US-B.I. PHARMACEUTICALS,INC./RIDGEFIELD-2009-BP-13632BP

PATIENT
  Sex: Male

DRUGS (11)
  1. SPIRIVA [Suspect]
     Indication: EMPHYSEMA
     Dosage: 18 MCG
     Route: 055
     Dates: start: 20060101
  2. ZANTAC [Concomitant]
     Indication: GASTROOESOPHAGEAL REFLUX DISEASE
     Dosage: 900 MG
  3. PLAVIX [Concomitant]
     Indication: MYOCARDIAL INFARCTION
     Dosage: 75 MG
  4. FUROSEMIDE [Concomitant]
     Indication: MYOCARDIAL INFARCTION
     Dosage: 20 MG
  5. STARLIX [Concomitant]
     Indication: DIABETES MELLITUS
     Dosage: 360 MG
  6. ACTOS [Concomitant]
     Indication: DIABETES MELLITUS
     Dosage: 30 MG
  7. LIPITOR [Concomitant]
     Indication: BLOOD CHOLESTEROL INCREASED
     Dosage: 20 MG
  8. ACTIVITE [Concomitant]
     Indication: VITAMIN SUPPLEMENTATION
  9. LASIX [Concomitant]
  10. TOPROL-XL [Concomitant]
     Dosage: 25 MG
  11. ASPIRIN [Concomitant]
     Dosage: 81 MG

REACTIONS (2)
  - MYOCARDIAL INFARCTION [None]
  - URINARY TRACT INFECTION [None]
